FAERS Safety Report 25765805 (Version 1)
Quarter: 2025Q3

REPORT INFORMATION
  Report Type: Spontaneous
  Country: US (occurrence: US)
  Receive Date: 20250905
  Receipt Date: 20250905
  Transmission Date: 20251020
  Serious: No
  Sender: DOMPE FARMACEUTICI
  Company Number: US-FARMAPROD-202407-2514

PATIENT
  Age: 69 Year
  Sex: Male

DRUGS (16)
  1. OXERVATE [Suspect]
     Active Substance: CENEGERMIN-BKBJ
     Indication: Neurotrophic keratopathy
     Route: 047
     Dates: start: 20240706, end: 20240725
  2. IVIZIA [Concomitant]
     Active Substance: POVIDONE
  3. VEVYE [Concomitant]
     Active Substance: CYCLOSPORINE
  4. TOBRADEX ST [Concomitant]
     Active Substance: DEXAMETHASONE\TOBRAMYCIN
  5. CHOLECALCIFEROL CRYSTALS [Concomitant]
  6. MONTELUKAST SODIUM [Concomitant]
     Active Substance: MONTELUKAST SODIUM
  7. VITAMIN B12 [Concomitant]
     Active Substance: CYANOCOBALAMIN
  8. AZITHROMYCIN [Concomitant]
     Active Substance: AZITHROMYCIN
  9. JAKAFI [Concomitant]
     Active Substance: RUXOLITINIB
  10. ACYCLOVIR [Concomitant]
     Active Substance: ACYCLOVIR
  11. FLUTICASONE - SALMETEROL [Concomitant]
  12. PANTOPRAZOLE SODIUM [Concomitant]
     Active Substance: PANTOPRAZOLE SODIUM
  13. BACTRIM DS [Concomitant]
     Active Substance: SULFAMETHOXAZOLE\TRIMETHOPRIM
  14. JARDIANCE [Concomitant]
     Active Substance: EMPAGLIFLOZIN
  15. OMEGA-3 ACIDS [Concomitant]
     Active Substance: OMEGA-3 FATTY ACIDS
  16. LOSARTAN POTASSIUM [Concomitant]
     Active Substance: LOSARTAN POTASSIUM

REACTIONS (3)
  - Ocular hyperaemia [Unknown]
  - Photophobia [Unknown]
  - Visual impairment [Unknown]

NARRATIVE: CASE EVENT DATE: 20240707
